FAERS Safety Report 8283634-6 (Version None)
Quarter: 2012Q2

REPORT INFORMATION
  Report Type: 
  Country: None (occurrence: None)
  Receive Date: 20120413
  Receipt Date: 20120410
  Transmission Date: 20120825
  Serious: Yes (Other)
  Sender: FDA-Public Use
  Company Number: BR-PFIZER INC-2012090388

PATIENT
  Age: 66 Year
  Sex: Female
  Weight: 64 kg

DRUGS (4)
  1. PROPRANOLOL [Concomitant]
     Indication: HYPERTENSION
     Dosage: 1 TABLET (UNKNOWN DOSE) DAILY
  2. MAXSULID [Concomitant]
     Indication: BACK PAIN
     Dosage: UNK
  3. LYRICA [Suspect]
     Indication: SPINAL DISORDER
     Dosage: 75 MG, 1X/DAY
     Route: 048
     Dates: end: 20120401
  4. CAPTOPRIL [Concomitant]
     Indication: HYPERTENSION
     Dosage: 25 MG, 1X/DAY

REACTIONS (2)
  - BLOOD PRESSURE INCREASED [None]
  - PAIN [None]
